FAERS Safety Report 6985262-9 (Version None)
Quarter: 2010Q3

REPORT INFORMATION
  Report Type: 
  Country: None (occurrence: None)
  Receive Date: 20100915
  Receipt Date: 20100809
  Transmission Date: 20110219
  Serious: No
  Sender: FDA-Public Use
  Company Number: US-PFIZER INC-2010100300

PATIENT

DRUGS (4)
  1. SPIRONOLACTONE [Suspect]
     Dosage: UNK
  2. CARVEDILOL [Concomitant]
     Dosage: UNK
  3. PLAVIX [Concomitant]
     Dosage: UNK
  4. VALSARTAN [Concomitant]
     Dosage: UNK

REACTIONS (1)
  - BREAST TENDERNESS [None]
